FAERS Safety Report 12306432 (Version 2)
Quarter: 2016Q4

REPORT INFORMATION
  Report Type: Spontaneous
  Country: US (occurrence: US)
  Receive Date: 20160426
  Receipt Date: 20161214
  Transmission Date: 20170207
  Serious: No
  Sender: FDA-Public Use
  Company Number: US-CELGENEUS-USA-2016044403

PATIENT
  Sex: Female

DRUGS (2)
  1. POMALYST [Suspect]
     Active Substance: POMALIDOMIDE
     Indication: PLASMA CELL MYELOMA
     Dosage: 2 MG
     Route: 048
     Dates: start: 201404
  2. POMALYST [Suspect]
     Active Substance: POMALIDOMIDE
     Dosage: 1 MG
     Route: 048
     Dates: start: 201601

REACTIONS (5)
  - Fatigue [Recovered/Resolved]
  - Gastric disorder [Recovered/Resolved]
  - Drug withdrawal syndrome [Unknown]
  - Diarrhoea [Recovered/Resolved]
  - Headache [Recovered/Resolved]
